FAERS Safety Report 7679600-1 (Version None)
Quarter: 2011Q3

REPORT INFORMATION
  Report Type: 
  Country: None (occurrence: None)
  Receive Date: 20110809
  Receipt Date: 20110727
  Transmission Date: 20111222
  Serious: Yes (Hospitalization)
  Sender: FDA-Public Use
  Company Number: 2011S1001091

PATIENT
  Age: 79 Year
  Sex: Male

DRUGS (3)
  1. LIVALO [Suspect]
     Indication: HYPERCHOLESTEROLAEMIA
     Dosage: 2 MG, 1X, PO
     Route: 048
     Dates: start: 20110315
  2. CLARITIN [Concomitant]
  3. SINGULAIR [Concomitant]

REACTIONS (3)
  - HEPATIC FUNCTION ABNORMAL [None]
  - NASOPHARYNGITIS [None]
  - MALAISE [None]
